FAERS Safety Report 5666311-7 (Version None)
Quarter: 2008Q1

REPORT INFORMATION
  Report Type: 
  Country: None (occurrence: None)
  Receive Date: 20080314
  Receipt Date: 20080207
  Transmission Date: 20080703
  Serious: No
  Sender: FDA-Public Use
  Company Number: US-ABBOTT-07P-163-0430386-00

PATIENT
  Sex: Female
  Weight: 205 kg

DRUGS (14)
  1. HUMIRA [Suspect]
     Indication: RHEUMATOID ARTHRITIS
     Route: 058
     Dates: start: 20071001
  2. CLONAZEPAM [Concomitant]
     Indication: ANXIETY
     Route: 048
  3. AMLODIPINE [Concomitant]
     Indication: CARDIAC DISORDER
     Route: 048
  4. MILK THRISTLE [Concomitant]
     Indication: MEDICAL DIET
     Route: 048
  5. FOLIC ACID [Concomitant]
     Indication: VITAMIN SUPPLEMENTATION
     Route: 048
  6. ZOLPIDEM TARTRATE [Concomitant]
     Indication: SLEEP DISORDER THERAPY
     Route: 048
  7. METHOTREXATE [Concomitant]
     Indication: RHEUMATOID ARTHRITIS
     Route: 048
  8. FISH OIL [Concomitant]
     Indication: MEDICAL DIET
     Route: 048
  9. LISINOPRIL [Concomitant]
     Indication: CARDIAC DISORDER
     Route: 048
  10. SUCRALFATE [Concomitant]
     Indication: GASTRIC DISORDER
     Route: 048
  11. SYNTHROID [Concomitant]
     Indication: HYPOTHYROIDISM
     Route: 048
  12. ESOMEPRAZOLE MAGNESIUM [Concomitant]
     Indication: GASTRIC DISORDER
     Route: 048
  13. CALTRATE [Concomitant]
     Indication: BLOOD CALCIUM DECREASED
     Dosage: CHEWABLE
     Route: 048
  14. VITAMIN CAP [Concomitant]
     Indication: VITAMIN SUPPLEMENTATION
     Route: 048

REACTIONS (3)
  - ACCIDENTAL EXPOSURE [None]
  - OEDEMA PERIPHERAL [None]
  - PAIN [None]
